FAERS Safety Report 10206007 (Version 1)
Quarter: 2014Q2

REPORT INFORMATION
  Report Type: Spontaneous
  Country: IN (occurrence: None)
  Receive Date: 20140527
  Receipt Date: 20140527
  Transmission Date: 20141212
  Serious: Yes (Life-Threatening, Other)
  Sender: FDA-Public Use
  Company Number: FK201401838

PATIENT
  Age: 60 Year
  Sex: Female

DRUGS (2)
  1. VALPROATE [Suspect]
     Indication: AGITATION
  2. OLANZAPINE (OLANZAPINE) [Suspect]
     Indication: PSYCHOTIC DISORDER

REACTIONS (9)
  - Neuroleptic malignant syndrome [None]
  - Drug interaction [None]
  - Generalised tonic-clonic seizure [None]
  - Hyperammonaemia [None]
  - Electrolyte imbalance [None]
  - Blood pressure decreased [None]
  - Anaemia [None]
  - Leukocytosis [None]
  - Hyponatraemia [None]
